FAERS Safety Report 23391708 (Version 1)
Quarter: 2024Q1

REPORT INFORMATION
  Report Type: Other
  Country: SE (occurrence: SE)
  Receive Date: 20240111
  Receipt Date: 20240111
  Transmission Date: 20240409
  Serious: Yes (Other)
  Sender: FDA-Public Use
  Company Number: None

PATIENT

DRUGS (17)
  1. LINEZOLID [Interacting]
     Active Substance: LINEZOLID
     Indication: Endocarditis
     Dosage: 600 MILLIGRAM, OD (1 TABLETT 1 G?NG/DAG)
     Route: 048
     Dates: start: 20231222
  2. WARFARIN SODIUM [Interacting]
     Active Substance: WARFARIN SODIUM
     Indication: Product used for unknown indication
     Dosage: 8.75 MILLIGRAM, OD (3,5 TABLETTER/DAG)
     Route: 048
     Dates: start: 20231104
  3. JARDIANCE [Concomitant]
     Active Substance: EMPAGLIFLOZIN
     Indication: Product used for unknown indication
     Dosage: 10 MILLIGRAM, OD, (1 TABLETT 1 G?NGER/DAG)
     Route: 048
     Dates: start: 20190627, end: 20231221
  4. FUROSEMIDE [Concomitant]
     Active Substance: FUROSEMIDE
     Indication: Product used for unknown indication
     Dosage: 40 MILLIGRAM, 0.5 DAY (4 ML 2 G?NGER/DAG)
     Route: 042
     Dates: start: 20231222
  5. ASPIRIN [Concomitant]
     Active Substance: ASPIRIN
     Indication: Product used for unknown indication
     Dosage: 75 MILLIGRAM, OD (1 TABLETT 1 G?NG/DAG)
     Route: 048
     Dates: start: 20231114
  6. BENFEROL [Concomitant]
     Indication: Product used for unknown indication
     Dosage: 800 INTERNATIONAL UNIT, OD(1 TABLETT 1 G?NG/DAG)
     Route: 048
     Dates: start: 20231221
  7. AMLODIPINE BESYLATE [Concomitant]
     Active Substance: AMLODIPINE BESYLATE
     Indication: Product used for unknown indication
     Dosage: 10 MILLIGRAM, OD (1 TABLETT 1 G?NG DAGLIGEN)
     Route: 048
     Dates: start: 20190808
  8. DIGOXIN [Concomitant]
     Active Substance: DIGOXIN
     Indication: Product used for unknown indication
     Dosage: 0.13 MILLIGRAM, OD (1 TABLETT 1 G?NG/DAG)
     Route: 048
     Dates: start: 20231206
  9. MAGNESIUM HYDROXIDE [Concomitant]
     Active Substance: MAGNESIUM HYDROXIDE
     Indication: Product used for unknown indication
     Dosage: 250 MILLIGRAM, OD (1 TABLETT 1 G?NGER/DAG)
     Route: 048
     Dates: start: 20231115
  10. OMEPRAZOL TEVA [OMEPRAZOLE] [Concomitant]
     Indication: Product used for unknown indication
     Dosage: 20 MILLIGRAM, OD (1 TABLETT 1 G?NG/DAG)
     Route: 048
     Dates: start: 20231222
  11. CEFOTAXIME SODIUM [Concomitant]
     Active Substance: CEFOTAXIME SODIUM
     Indication: Product used for unknown indication
     Dosage: 1 GRAM. 0.33 DAY (1 G 3 G?NGER/DAG)
     Route: 042
     Dates: start: 20231214
  12. OXYCODONE HYDROCHLORIDE [Concomitant]
     Active Substance: OXYCODONE HYDROCHLORIDE
     Indication: Product used for unknown indication
     Dosage: UNK UNK, PRN (1-2 TABLETTER DAGLIGEN VID BEHOV)
     Route: 048
     Dates: start: 20231216
  13. MELATONIN [Concomitant]
     Active Substance: MELATONIN
     Indication: Product used for unknown indication
     Dosage: 2 MILLIGRAM, PRN (1 TABLETT VID BEHOV TILL NATTEN)
     Route: 048
     Dates: start: 20231215
  14. METOPROLOL [Concomitant]
     Active Substance: METOPROLOL
     Indication: Product used for unknown indication
     Dosage: 200 MILLIGRAM, 0.5 DAY (2 TABLETTER 2 G?NGER/DAG)
     Route: 048
     Dates: start: 20231115
  15. NEXIUM I.V. [Concomitant]
     Active Substance: ESOMEPRAZOLE SODIUM
     Indication: Product used for unknown indication
     Dosage: 40 MILLIGRAM, OD (1 TABLETT 1 G?NG/DAG)
     Route: 048
     Dates: start: 20231103, end: 20231221
  16. LANTUS SOLOSTAR [Concomitant]
     Active Substance: INSULIN GLARGINE
     Indication: Product used for unknown indication
     Dosage: 14 INTERNATIONAL UNIT, OD (14 ENHETER 1 G?NG/DAG, SOLUTION FOR INJECTION IN PRE-FILLED PEN)
     Route: 058
     Dates: start: 20231024
  17. FUROSEMIDE [Concomitant]
     Active Substance: FUROSEMIDE
     Indication: Product used for unknown indication
     Dosage: 40 MILLIGRAM, 0.5 DAY (1 TABLETTER 2 G?NGER/DAG)
     Route: 048
     Dates: start: 20231114, end: 20231222

REACTIONS (2)
  - International normalised ratio increased [Recovering/Resolving]
  - Potentiating drug interaction [Recovering/Resolving]

NARRATIVE: CASE EVENT DATE: 20231224
